FAERS Safety Report 6535275-6 (Version None)
Quarter: 2010Q1

REPORT INFORMATION
  Report Type: 
  Country: None (occurrence: None)
  Receive Date: 20100113
  Receipt Date: 20100108
  Transmission Date: 20100710
  Serious: Yes (Other)
  Sender: FDA-Public Use
  Company Number: FR-WYE-G05303110

PATIENT
  Age: 21 Year
  Sex: Male
  Weight: 78 kg

DRUGS (2)
  1. ADVIL [Suspect]
     Indication: TOOTHACHE
     Route: 048
     Dates: start: 20091208, end: 20091210
  2. IBUPROFEN [Suspect]
     Indication: TOOTHACHE
     Dosage: 2 TABLETS OF 200 MG
     Route: 048
     Dates: start: 20091201, end: 20091201

REACTIONS (5)
  - ABDOMINAL PAIN UPPER [None]
  - INAPPROPRIATE SCHEDULE OF DRUG ADMINISTRATION [None]
  - INCORRECT DOSE ADMINISTERED [None]
  - INTENTIONAL OVERDOSE [None]
  - VOMITING [None]
